FAERS Safety Report 19881245 (Version 1)
Quarter: 2021Q3

REPORT INFORMATION
  Report Type: Report from Study
  Country: US (occurrence: US)
  Receive Date: 20210924
  Receipt Date: 20210924
  Transmission Date: 20211014
  Serious: Yes (Death, Hospitalization)
  Sender: FDA-Public Use
  Company Number: US-EXELIXIS-CABO-21043335

PATIENT
  Age: 53 Year
  Sex: Male

DRUGS (2)
  1. CABOMETYX [Suspect]
     Active Substance: CABOZANTINIB S-MALATE
     Dosage: 60 MG, QD
     Route: 048
     Dates: end: 202109
  2. CABOMETYX [Suspect]
     Active Substance: CABOZANTINIB S-MALATE
     Indication: RENAL CANCER
     Dosage: 60 MG, QD
     Route: 048
     Dates: start: 202107

REACTIONS (13)
  - Weight increased [Unknown]
  - Pulmonary embolism [Fatal]
  - Dehydration [Unknown]
  - Initial insomnia [Recovering/Resolving]
  - Erythema [Unknown]
  - Oral pain [Unknown]
  - Infection [Unknown]
  - Fluid retention [Recovering/Resolving]
  - Rash papular [Recovering/Resolving]
  - Herpes zoster [Unknown]
  - Constipation [Recovering/Resolving]
  - Malignant neoplasm progression [Unknown]
  - Fatigue [Unknown]

NARRATIVE: CASE EVENT DATE: 20210702
